FAERS Safety Report 4620699-4 (Version None)
Quarter: 2005Q1

REPORT INFORMATION
  Report Type: 
  Country: None (occurrence: None)
  Receive Date: 20050325
  Receipt Date: 20050314
  Transmission Date: 20050727
  Serious: Yes (Other)
  Sender: FDA-Public Use
  Company Number: 200415887BCC

PATIENT
  Age: 50 Year
  Sex: Female
  Weight: 77.1115 kg

DRUGS (5)
  1. ALEVE (CAPLET) [Suspect]
     Indication: BACK PAIN
     Dosage: 220 MG, BID; ORAL
     Route: 048
     Dates: start: 20041205
  2. LAMICTAL [Suspect]
     Dosage: 300-200 MG, BID,
  3. ZETIA [Concomitant]
  4. ESTRADIOL [Concomitant]
  5. DEPO-PROVERA [Concomitant]

REACTIONS (7)
  - CONVULSION [None]
  - DRUG INTERACTION [None]
  - DYSGEUSIA [None]
  - HEADACHE [None]
  - MUSCLE TWITCHING [None]
  - PARTIAL SEIZURES [None]
  - SPEECH DISORDER [None]
